FAERS Safety Report 4503440-5 (Version None)
Quarter: 2004Q4

REPORT INFORMATION
  Report Type: 
  Country: None (occurrence: None)
  Receive Date: 20041117
  Receipt Date: 20041108
  Transmission Date: 20050328
  Serious: Yes (Hospitalization, Other)
  Sender: FDA-Public Use
  Company Number: JP-BRISTOL-MYERS SQUIBB COMPANY-12765145

PATIENT
  Age: 75 Year
  Sex: Female

DRUGS (1)
  1. GATIFLO TABS 100 MG [Suspect]
     Indication: PNEUMONIA
     Route: 048

REACTIONS (3)
  - DEPRESSED LEVEL OF CONSCIOUSNESS [None]
  - HYPERTHERMIA [None]
  - HYPOGLYCAEMIA [None]
